FAERS Safety Report 23258855 (Version 1)
Quarter: 2023Q4

REPORT INFORMATION
  Report Type: Spontaneous
  Country: US (occurrence: None)
  Receive Date: 20231203
  Receipt Date: 20231203
  Transmission Date: 20240109
  Serious: Yes (Other)
  Sender: FDA-Public Use
  Company Number: None

PATIENT
  Age: 66 Year
  Sex: Female
  Weight: 79.65 kg

DRUGS (2)
  1. COVID-19 VACCINE NOS [Suspect]
     Active Substance: COVID-19 VACCINE NOS
     Indication: COVID-19 prophylaxis
     Dates: start: 20231016
  2. Daily multivitamins [Concomitant]

REACTIONS (3)
  - Flushing [None]
  - Feeling jittery [None]
  - Blood pressure increased [None]

NARRATIVE: CASE EVENT DATE: 20231019
